FAERS Safety Report 6557337-X (Version None)
Quarter: 2010Q1

REPORT INFORMATION
  Report Type: 
  Country: None (occurrence: None)
  Receive Date: 20100128
  Receipt Date: 20100128
  Transmission Date: 20100710
  Serious: Yes (Other)
  Sender: FDA-Public Use
  Company Number: None

PATIENT
  Age: 37 Year
  Sex: Female
  Weight: 52.1637 kg

DRUGS (2)
  1. TYLENOL CHILDRENS ORAL SUSPENSIO 80MG/-1/2- TEASPOON MCNEIL PPC, INC [Suspect]
     Indication: HEADACHE
     Dosage: 480MG -3 TEASPOONS; 360MG TEASP 2 DOSES TOTAL PO
     Route: 048
     Dates: start: 20100116, end: 20100116
  2. TYLENOL CHILDRENS ORAL SUSPENSIO 80MG/-1/2- TEASPOON MCNEIL PPC, INC [Suspect]
     Indication: HEADACHE
     Dosage: 480MG -3 TEASPOONS; 360MG TEASP 2 DOSES TOTAL PO
     Route: 048
     Dates: start: 20100127, end: 20100127

REACTIONS (3)
  - DIARRHOEA [None]
  - PRODUCT CONTAMINATION [None]
  - PRODUCT QUALITY ISSUE [None]
